FAERS Safety Report 9276332 (Version 2)
Quarter: 2013Q2

REPORT INFORMATION
  Report Type: Spontaneous
  Country: JP (occurrence: JP)
  Receive Date: 20130507
  Receipt Date: 20130529
  Transmission Date: 20140414
  Serious: Yes (Hospitalization)
  Sender: FDA-Public Use
  Company Number: JP-LUNDBECK-DKLU1090817

PATIENT
  Age: 4 Year
  Sex: Female

DRUGS (26)
  1. VIGABATRIN (FOR ORAL SOLUTION) [Suspect]
     Indication: INFANTILE SPASMS
     Dosage: 750 MG
     Dates: start: 20130423, end: 20130425
  2. ONON [Concomitant]
     Indication: ASTHMA
     Dates: start: 20121016
  3. DEPAKINE [Concomitant]
     Indication: INFANTILE SPASMS
     Dates: start: 20130315
  4. LAMICTAL [Concomitant]
     Indication: INFANTILE SPASMS
     Dates: start: 20121025
  5. LAMICTAL [Concomitant]
     Dates: start: 20130508
  6. LAMICTAL [Concomitant]
     Dates: start: 20130513
  7. ASTHPUL [Concomitant]
     Indication: ASTHMA
     Dates: start: 20130424, end: 20130430
  8. ZOSYN [Concomitant]
     Indication: ASTHMA
     Dates: start: 20130424, end: 20130430
  9. GABAPENTIN [Concomitant]
     Indication: INFANTILE SPASMS
  10. KEPPRA [Concomitant]
     Indication: INFANTILE SPASMS
     Dates: start: 20120302, end: 20130517
  11. TOCOPHEROL [Concomitant]
     Indication: INFANTILE SPASMS
     Dates: start: 20121016
  12. NEUQUINON [Concomitant]
     Indication: INFANTILE SPASMS
     Dates: start: 20120427
  13. ALFAROL [Concomitant]
     Indication: RICKETS
     Dates: start: 20120605
  14. GASTER [Concomitant]
     Indication: GASTROINTESTINAL DISORDER
  15. GASMOTIN [Concomitant]
     Indication: GASTROINTESTINAL DISORDER
  16. MUCOSOLVAN [Concomitant]
     Indication: ASTHMA
  17. MUCODYNE [Concomitant]
     Indication: ASTHMA
     Dates: start: 20100516
  18. AZULENE [Concomitant]
     Indication: PRODUCT USED FOR UNKNOWN INDICATION
  19. THYRADIN [Concomitant]
     Indication: HYPOTHYROIDISM
     Dates: start: 20121010
  20. LEVOCARNITINE HYDROCHLORIDE [Concomitant]
     Indication: CARNITINE DEFICIENCY
     Dates: start: 20120413, end: 20130507
  21. BENZALIN [Concomitant]
     Indication: INFANTILE SPASMS
     Dates: start: 20130117, end: 20130507
  22. DIAPP [Concomitant]
     Indication: INFANTILE SPASMS
     Dates: start: 20130418
  23. CYANOCOBALAMIN/ PYRIDOXINE HYDROCHLORIDE/ THIAMINE DISULFIDE [Concomitant]
     Indication: INFANTILE SPASMS
     Dates: start: 20120502
  24. INTAL [Concomitant]
     Indication: ASTHMA
     Dates: start: 20130117
  25. PULMICORT [Concomitant]
     Indication: ASTHMA
     Dates: start: 20130117
  26. GENERAL NUTRIENTS [Concomitant]
     Indication: INFANTILE SPASMS

REACTIONS (2)
  - Asthma [Recovering/Resolving]
  - Status epilepticus [Recovered/Resolved]
